FAERS Safety Report 6475821-4 (Version None)
Quarter: 2009Q4

REPORT INFORMATION
  Report Type: 
  Country: None (occurrence: None)
  Receive Date: 20091204
  Receipt Date: 20090203
  Transmission Date: 20100525
  Serious: No
  Sender: FDA-Public Use
  Company Number: US-AMGEN-KDL327029

PATIENT
  Sex: Female
  Weight: 86.3 kg

DRUGS (4)
  1. ENBREL [Suspect]
     Indication: ANKYLOSING SPONDYLITIS
     Route: 058
     Dates: start: 20070601
  2. IBUPROFEN [Concomitant]
     Dates: start: 20070201
  3. PREDNISONE [Concomitant]
     Dates: start: 20061221
  4. TRAZODONE [Concomitant]
     Dates: start: 20060801

REACTIONS (3)
  - BLOOD CHOLESTEROL INCREASED [None]
  - HYPERLIPIDAEMIA [None]
  - SINUSITIS [None]
